FAERS Safety Report 6068836-1 (Version None)
Quarter: 2009Q1

REPORT INFORMATION
  Report Type: 
  Country: None (occurrence: None)
  Receive Date: 20090206
  Receipt Date: 20090128
  Transmission Date: 20090719
  Serious: Yes (Hospitalization)
  Sender: FDA-Public Use
  Company Number: SE-ABBOTT-08P-150-0470263-00

PATIENT
  Sex: Female
  Weight: 67 kg

DRUGS (9)
  1. HUMIRA [Suspect]
     Indication: CROHN'S DISEASE
     Route: 058
     Dates: start: 20080415, end: 20080805
  2. BUDESONIDE [Concomitant]
     Indication: CROHN'S DISEASE
     Dates: end: 20080401
  3. AZATHIOPRINE [Concomitant]
     Indication: CROHN'S DISEASE
  4. METRONIDAZOLE [Concomitant]
     Indication: CROHN'S DISEASE
  5. AZATIOPRIN [Concomitant]
     Indication: CROHN'S DISEASE
     Dates: start: 20010201
  6. ESTRADIOL [Concomitant]
     Indication: MENOPAUSE
     Dates: start: 20050101
  7. LESTID [Concomitant]
     Indication: DIARRHOEA
     Dates: start: 20070926
  8. VITAMIN B [Concomitant]
     Indication: VITAMIN SUPPLEMENTATION
     Dosage: 0.5,0.8,3 MG
     Dates: start: 20030501
  9. ZINC SULFATE [Concomitant]
     Indication: ZINC DEFICIENCY
     Dates: start: 20070901

REACTIONS (1)
  - PROCEDURAL SITE REACTION [None]
